FAERS Safety Report 12560685 (Version 1)
Quarter: 2016Q3

REPORT INFORMATION
  Report Type: Spontaneous
  Country: US (occurrence: None)
  Receive Date: 20160714
  Receipt Date: 20160714
  Transmission Date: 20161109
  Serious: Yes (Other)
  Sender: FDA-Public Use
  Company Number: None

PATIENT
  Age: 70 Year
  Sex: Female
  Weight: 54.43 kg

DRUGS (7)
  1. VITAIMIN C [Concomitant]
  2. LATANOPROST OPHTHALMIC SOLUTION AKORN INC [Suspect]
     Active Substance: LATANOPROST
     Indication: GLAUCOMA
     Route: 031
     Dates: start: 20160605, end: 20160610
  3. CHEW PARSELY [Concomitant]
  4. TIMOLOL. [Suspect]
     Active Substance: TIMOLOL
  5. NORWEIGAN CODE LIVER OIL [Concomitant]
  6. CHEW GARLIC [Concomitant]
  7. TIMOLOL DORZOL [Concomitant]

REACTIONS (3)
  - Diarrhoea [None]
  - Product substitution issue [None]
  - Muscle spasms [None]

NARRATIVE: CASE EVENT DATE: 20160608
